FAERS Safety Report 18457209 (Version 3)
Quarter: 2022Q3

REPORT INFORMATION
  Report Type: Report from Study
  Country: CA (occurrence: CA)
  Receive Date: 20201103
  Receipt Date: 20220711
  Transmission Date: 20221027
  Serious: Yes (Hospitalization, Other)
  Sender: FDA-Public Use
  Company Number: CA-GLAXOSMITHKLINE-CA2020AMR214429

PATIENT

DRUGS (1)
  1. MEPOLIZUMAB [Suspect]
     Active Substance: MEPOLIZUMAB
     Indication: Asthma
     Dosage: 100 MG, Z (MONTHLY)
     Route: 042
     Dates: start: 20180502

REACTIONS (5)
  - Fall [Recovering/Resolving]
  - Cervical vertebral fracture [Recovering/Resolving]
  - Spinal fracture [Recovering/Resolving]
  - Clavicle fracture [Recovering/Resolving]
  - Rib fracture [Recovering/Resolving]
